FAERS Safety Report 6031602-7 (Version None)
Quarter: 2008Q4

REPORT INFORMATION
  Report Type: 
  Country: None (occurrence: None)
  Receive Date: 20081229
  Receipt Date: 20080612
  Transmission Date: 20090506
  Serious: Yes (Other)
  Sender: FDA-Public Use
  Company Number: WAES 0806USA02581

PATIENT
  Sex: Male

DRUGS (2)
  1. ZETIA [Suspect]
     Dosage: 10 MG DAILY PO
     Route: 048
  2. NIACIN [Suspect]
     Dosage: 500 MG DAILY PO
     Route: 048

REACTIONS (1)
  - BLOOD CREATINE PHOSPHOKINASE INCREASED [None]
